FAERS Safety Report 14624080 (Version 2)
Quarter: 2018Q1

REPORT INFORMATION
  Report Type: Spontaneous
  Country: US (occurrence: US)
  Receive Date: 20180312
  Receipt Date: 20180316
  Transmission Date: 20180509
  Serious: No
  Sender: FDA-Public Use
  Company Number: US-ORPHAN EUROPE-2043492

PATIENT
  Sex: Female
  Weight: 6.36 kg

DRUGS (3)
  1. CARBAGLU [Suspect]
     Active Substance: CARGLUMIC ACID
     Indication: UREA CYCLE DISORDER
     Dates: start: 20171009
  2. CARBAGLU [Suspect]
     Active Substance: CARGLUMIC ACID
  3. CARBAGLU [Suspect]
     Active Substance: CARGLUMIC ACID

REACTIONS (1)
  - Diarrhoea [Not Recovered/Not Resolved]
